FAERS Safety Report 8024842-9 (Version None)
Quarter: 2012Q1

REPORT INFORMATION
  Report Type: 
  Country: None (occurrence: None)
  Receive Date: 20120105
  Receipt Date: 20111221
  Transmission Date: 20120608
  Serious: Yes (Death, Life-Threatening, Hospitalization, Other)
  Sender: FDA-Public Use
  Company Number: ES-CELGENEUS-144-50794-11122981

PATIENT
  Sex: Male

DRUGS (13)
  1. INSULINE NPH [Concomitant]
     Indication: DIABETES MELLITUS
     Dosage: 15/5
     Route: 065
     Dates: start: 20070529
  2. IRBESARTAN [Concomitant]
     Indication: HYPERTENSION
     Dosage: 160 MILLIGRAM
     Route: 065
     Dates: end: 20070519
  3. METFORMIN HCL [Concomitant]
     Indication: DIABETES MELLITUS
     Dosage: 2550 MILLIGRAM
     Route: 065
     Dates: end: 20070522
  4. ALLOPURINOL [Concomitant]
     Dosage: 300 MILLIGRAM
     Route: 065
     Dates: start: 20070606
  5. IBUPROFEN [Concomitant]
     Dosage: 1200 MILLIGRAM
     Route: 065
     Dates: start: 20070529, end: 20070605
  6. ACARBOSE [Concomitant]
     Indication: DIABETES MELLITUS
     Dosage: 300 MILLIGRAM
     Route: 065
     Dates: end: 20070517
  7. FRAXIPARINE [Concomitant]
     Indication: THROMBOSIS PROPHYLAXIS
     Dosage: .3 MILLILITER
     Route: 065
     Dates: start: 20070517, end: 20070702
  8. CEFEPIME [Concomitant]
     Indication: FEBRILE NEUTROPENIA
     Dosage: 6 GRAM
     Route: 065
     Dates: start: 20070606, end: 20070614
  9. VIDAZA [Suspect]
     Dosage: 75 MILLIGRAM/SQ. METER
     Route: 065
     Dates: start: 20070614, end: 20070620
  10. COLCHICINE [Concomitant]
     Indication: PROPHYLAXIS
     Dosage: 1 MILLIGRAM
     Route: 065
     Dates: start: 20070606
  11. AMIKACIN [Concomitant]
     Indication: FEBRILE NEUTROPENIA
     Dosage: 1500 MILLIGRAM
     Route: 065
     Dates: start: 20070606, end: 20070611
  12. HYDROCHLOROTHIAZIDE [Concomitant]
     Indication: HYPERTENSION
     Dosage: 12.5 MILLIGRAM
     Route: 065
     Dates: end: 20070519
  13. LEVOFLOXACIN [Concomitant]
     Indication: FEBRILE NEUTROPENIA
     Dosage: 500 MILLIGRAM
     Route: 065
     Dates: start: 20070605, end: 20070606

REACTIONS (1)
  - NEUTROPENIC INFECTION [None]
